FAERS Safety Report 18992487 (Version 1)
Quarter: 2021Q1

REPORT INFORMATION
  Report Type: Spontaneous
  Country: IS (occurrence: IS)
  Receive Date: 20210310
  Receipt Date: 20210310
  Transmission Date: 20210420
  Serious: Yes (Hospitalization, Other)
  Sender: FDA-Public Use
  Company Number: IS-PFIZER INC-2021208052

PATIENT
  Age: 54 Year
  Sex: Male

DRUGS (10)
  1. CARBOPLATIN. [Suspect]
     Active Substance: CARBOPLATIN
     Indication: LUNG ADENOCARCINOMA
     Dosage: UNK
     Dates: start: 20200113
  2. OSIMERTINIB. [Suspect]
     Active Substance: OSIMERTINIB
     Indication: LUNG ADENOCARCINOMA
     Dosage: 80 MG, 1X/DAY
     Route: 048
     Dates: start: 20200226, end: 20200421
  3. PEMBROLIZUMAB. [Suspect]
     Active Substance: PEMBROLIZUMAB
     Indication: NON-SMALL CELL LUNG CANCER
     Dosage: UNK
     Dates: start: 20200113, end: 20200226
  4. CARBOPLATIN. [Suspect]
     Active Substance: CARBOPLATIN
     Indication: NON-SMALL CELL LUNG CANCER
  5. PEMETREXED. [Suspect]
     Active Substance: PEMETREXED
     Indication: LUNG ADENOCARCINOMA
  6. PEMETREXED. [Suspect]
     Active Substance: PEMETREXED
     Indication: NON-SMALL CELL LUNG CANCER
     Dosage: UNK
     Dates: start: 20200113
  7. OSIMERTINIB. [Suspect]
     Active Substance: OSIMERTINIB
     Dosage: 40 MG EVERY, OTHER DAY AND 80 MG, EVERY OTHER DAY (WITH PLANS TO TRY TO GO UP TO 80 MG SHORTLY)
     Route: 048
  8. OSIMERTINIB. [Suspect]
     Active Substance: OSIMERTINIB
     Indication: NON-SMALL CELL LUNG CANCER
     Dosage: 40 MG, 1X/DAY
     Route: 048
     Dates: start: 20200511
  9. OSIMERTINIB. [Suspect]
     Active Substance: OSIMERTINIB
     Dosage: 40 MG EVERY, OTHER DAY AND 80 MG, EVERY OTHER DAY (WITH PLANS TO TRY TO GO UP TO 80 MG SHORTLY)
     Route: 048
  10. PEMBROLIZUMAB. [Suspect]
     Active Substance: PEMBROLIZUMAB
     Indication: LUNG ADENOCARCINOMA

REACTIONS (6)
  - Pain [Unknown]
  - Suspected COVID-19 [Unknown]
  - Mucosal inflammation [Recovered/Resolved]
  - Immune-mediated pneumonitis [Recovered/Resolved]
  - Off label use [Unknown]
  - Product use in unapproved indication [Unknown]

NARRATIVE: CASE EVENT DATE: 2020
